FAERS Safety Report 11106190 (Version 2)
Quarter: 2015Q2

REPORT INFORMATION
  Report Type: Spontaneous
  Country: GB (occurrence: GB)
  Receive Date: 20150512
  Receipt Date: 20150528
  Transmission Date: 20150821
  Serious: Yes (Hospitalization)
  Sender: FDA-Public Use
  Company Number: GB-JNJFOC-20150506315

PATIENT
  Age: 86 Year
  Sex: Female

DRUGS (9)
  1. SITAGLIPTIN [Concomitant]
     Active Substance: SITAGLIPTIN
     Indication: TYPE 2 DIABETES MELLITUS
     Route: 048
     Dates: start: 20120607
  2. LOSARTAN [Concomitant]
     Active Substance: LOSARTAN
     Indication: BLOOD PRESSURE INCREASED
     Route: 048
     Dates: start: 20150203
  3. RISEDRONATE SODIUM. [Concomitant]
     Active Substance: RISEDRONATE SODIUM
     Indication: OSTEOPOROSIS
     Route: 048
     Dates: start: 20110728
  4. ZYRTEC [Suspect]
     Active Substance: CETIRIZINE HYDROCHLORIDE
     Route: 048
  5. ZYRTEC [Suspect]
     Active Substance: CETIRIZINE HYDROCHLORIDE
     Indication: RASH PRURITIC
     Route: 048
     Dates: start: 20150410, end: 20150419
  6. PARACETAMOL [Concomitant]
     Active Substance: ACETAMINOPHEN
     Indication: OSTEOARTHRITIS
     Route: 048
     Dates: start: 19880706
  7. GLIMEPIRIDE. [Concomitant]
     Active Substance: GLIMEPIRIDE
     Indication: TYPE 2 DIABETES MELLITUS
     Route: 048
     Dates: start: 20130212
  8. BETAHISTINE [Concomitant]
     Active Substance: BETAHISTINE
     Indication: DIZZINESS
     Route: 048
     Dates: start: 20140801
  9. CALCIUM CARBONATE W/COLECALCIFEROL [Concomitant]
     Active Substance: CALCIUM CARBONATE\CHOLECALCIFEROL
     Indication: OSTEOPOROSIS
     Dosage: 750 MG/200 I.U
     Route: 048
     Dates: start: 20140530

REACTIONS (5)
  - Fall [Recovered/Resolved]
  - Malaise [Unknown]
  - Oral herpes [Recovered/Resolved]
  - Mouth ulceration [Recovered/Resolved]
  - Rash pruritic [Unknown]

NARRATIVE: CASE EVENT DATE: 2015
